FAERS Safety Report 5482578-2 (Version None)
Quarter: 2007Q4

REPORT INFORMATION
  Report Type: 
  Country: None (occurrence: None)
  Receive Date: 20071011
  Receipt Date: 20070717
  Transmission Date: 20080405
  Serious: No
  Sender: FDA-Public Use
  Company Number: A0664606A

PATIENT
  Age: 48 Year
  Sex: Female

DRUGS (4)
  1. TYKERB [Suspect]
     Indication: BREAST CANCER
     Dosage: 250MG FIVE TIMES PER DAY
     Route: 048
     Dates: start: 20070101
  2. XELODA [Concomitant]
  3. MUSCLE RELAXER [Concomitant]
  4. PAIN MEDICATION [Concomitant]

REACTIONS (6)
  - CONSTIPATION [None]
  - FAECES DISCOLOURED [None]
  - FATIGUE [None]
  - GINGIVAL BLEEDING [None]
  - SENSITIVITY OF TEETH [None]
  - SKIN LACERATION [None]
